FAERS Safety Report 9397585 (Version 2)
Quarter: 2013Q3

REPORT INFORMATION
  Report Type: Spontaneous
  Country: GB (occurrence: GB)
  Receive Date: 20130712
  Receipt Date: 20130809
  Transmission Date: 20140515
  Serious: Yes (Disabling)
  Sender: FDA-Public Use
  Company Number: GB-ABBOTT-12P-167-1013654-00

PATIENT
  Age: 48 Year
  Sex: Male

DRUGS (11)
  1. LANSOPRAZOLE [Suspect]
     Indication: PROPHYLAXIS AGAINST GASTROINTESTINAL ULCER
     Route: 048
     Dates: start: 20120528
  2. PREDNISOLONE [Suspect]
     Indication: PEMPHIGUS
  3. PREDNISOLONE [Suspect]
     Route: 048
     Dates: start: 20120518
  4. PREDNISOLONE [Suspect]
     Route: 048
     Dates: start: 20120518
  5. ALENDRONIC ACID [Suspect]
     Indication: OSTEOPOROSIS PROPHYLAXIS
     Route: 048
     Dates: start: 20120528
  6. AZATHIOPRINE [Suspect]
     Indication: PEMPHIGUS
     Route: 048
     Dates: start: 20120607
  7. ADCAL D3 [Suspect]
     Indication: OSTEOPOROSIS PROPHYLAXIS
     Route: 048
     Dates: start: 20120414
  8. CORSODYL [Concomitant]
     Indication: PEMPHIGUS
     Route: 048
     Dates: start: 20120518, end: 20120601
  9. BETNOVATE-C [Concomitant]
     Indication: PRODUCT USED FOR UNKNOWN INDICATION
     Route: 061
     Dates: start: 20120711
  10. DERMOVATE [Concomitant]
     Indication: PRODUCT USED FOR UNKNOWN INDICATION
     Route: 061
     Dates: start: 20120711
  11. DERMOL [Concomitant]
     Indication: PRODUCT USED FOR UNKNOWN INDICATION
     Route: 061
     Dates: start: 20120614

REACTIONS (3)
  - Temporomandibular joint syndrome [Unknown]
  - Tremor [Recovered/Resolved]
  - Trismus [Unknown]
